FAERS Safety Report 9566743 (Version 1)
Quarter: 2013Q3

REPORT INFORMATION
  Report Type: Spontaneous
  Country: US (occurrence: US)
  Receive Date: 20130930
  Receipt Date: 20130930
  Transmission Date: 20140515
  Serious: No
  Sender: FDA-Public Use
  Company Number: US-AMGEN-USASP2012079837

PATIENT
  Sex: Male

DRUGS (3)
  1. ENBREL [Suspect]
     Indication: RHEUMATOID ARTHRITIS
     Dosage: 50 MG, QWK
     Route: 058
  2. TESTOSTERONE [Concomitant]
     Dosage: 100 MG/ML, UNK
  3. SIMVASTATIN [Concomitant]
     Dosage: 100 MG, UNK

REACTIONS (2)
  - Hypertension [Unknown]
  - Family stress [Unknown]
